FAERS Safety Report 21500368 (Version 1)
Quarter: 2022Q4

REPORT INFORMATION
  Report Type: Spontaneous
  Country: US (occurrence: US)
  Receive Date: 20221024
  Receipt Date: 20221024
  Transmission Date: 20230112
  Serious: Yes (Death, Other)
  Sender: FDA-Public Use
  Company Number: US-BRISTOL-MYERS SQUIBB COMPANY-2022-126187

PATIENT
  Age: 65 Year
  Sex: Female

DRUGS (2)
  1. OPDIVO [Suspect]
     Active Substance: NIVOLUMAB
     Indication: Thyroid cancer
     Dosage: STRENGTH AND PRESENTATION OF THE AE : 2 VIALS 50MG YERVOY/ OPDIVO 240MG VIALS
     Route: 042
     Dates: start: 20220425
  2. YERVOY [Suspect]
     Active Substance: IPILIMUMAB
     Indication: Thyroid cancer
     Dosage: STRENGTH AND PRESENTATION OF THE AE : 2 VIALS 50MG YERVOY/ OPDIVO 240MG VIALS
     Route: 042
     Dates: start: 20220425

REACTIONS (2)
  - Death [Fatal]
  - Intentional product use issue [Unknown]

NARRATIVE: CASE EVENT DATE: 20220801
